FAERS Safety Report 6803224-9 (Version None)
Quarter: 2010Q2

REPORT INFORMATION
  Report Type: 
  Country: None (occurrence: None)
  Receive Date: 20100628
  Receipt Date: 20100625
  Transmission Date: 20101027
  Serious: Yes (Death)
  Sender: FDA-Public Use
  Company Number: B0661192A

PATIENT
  Age: 47 Year
  Sex: Male

DRUGS (2)
  1. KIVEXA [Suspect]
     Indication: DRUG USE FOR UNKNOWN INDICATION
     Route: 065
  2. STATINS [Concomitant]

REACTIONS (1)
  - MYOCARDIAL INFARCTION [None]
